FAERS Safety Report 5857780-8 (Version None)
Quarter: 2008Q3

REPORT INFORMATION
  Report Type: 
  Country: None (occurrence: None)
  Receive Date: 20080826
  Receipt Date: 20080813
  Transmission Date: 20090109
  Serious: Yes (Other)
  Sender: FDA-Public Use
  Company Number: BR-RANBAXY-2008R5-17333

PATIENT

DRUGS (1)
  1. AMOXICILLIN + CLAVULANATE POTASSIUM [Suspect]
     Indication: RESPIRATORY TRACT INFECTION
     Dosage: 5 ML, TID
     Route: 048
     Dates: start: 20080808, end: 20080814

REACTIONS (3)
  - DEHYDRATION [None]
  - DIARRHOEA [None]
  - PYREXIA [None]
